FAERS Safety Report 8140540 (Version 3)
Quarter: 2012Q4

REPORT INFORMATION
  Report Type: 
  Country: AR (occurrence: AR)
  Receive Date: 20110916
  Receipt Date: 20120917
  Transmission Date: 20130627
  Serious: Yes (Other)
  Sender: FDA-Public Use
  Company Number: AR-ROCHE-GNE324187

PATIENT
  Age: 50 None
  Sex: Female

DRUGS (1)
  1. XOLAIR [Suspect]
     Indication: ASTHMA
     Dosage: 1 amp, Q15D, Dose=1 amp, Daily Dose=.066 amp, Total Dose=1 amp
     Route: 065
     Dates: start: 201107

REACTIONS (7)
  - Phlebitis [Recovering/Resolving]
  - Alopecia [Recovering/Resolving]
  - Injection site swelling [Recovering/Resolving]
  - Nervousness [Recovering/Resolving]
  - Pyrexia [Recovered/Resolved]
  - Influenza like illness [Recovered/Resolved]
  - Abdominal pain upper [Recovering/Resolving]
